FAERS Safety Report 25322557 (Version 1)
Quarter: 2025Q2

REPORT INFORMATION
  Report Type: Spontaneous
  Country: CN (occurrence: CN)
  Receive Date: 20250516
  Receipt Date: 20250516
  Transmission Date: 20250717
  Serious: Yes (Hospitalization)
  Sender: COHERUS
  Company Number: CN-SHANGHAI JUNSHI BIOSCIENCES CO., LTD.-CN2025014109

PATIENT

DRUGS (9)
  1. TORIPALIMAB [Suspect]
     Active Substance: TORIPALIMAB
     Indication: Nasopharyngeal cancer
     Route: 041
     Dates: start: 20250402
  2. PACLITAXEL [Suspect]
     Active Substance: PACLITAXEL
     Indication: Nasopharyngeal cancer
     Dosage: 400 MG (D0), Q21D
     Route: 041
     Dates: start: 20250402, end: 20250402
  3. PACLITAXEL [Suspect]
     Active Substance: PACLITAXEL
     Dosage: 400 MG (D0), Q21D
     Route: 041
     Dates: start: 20250424
  4. CISPLATIN [Suspect]
     Active Substance: CISPLATIN
     Indication: Nasopharyngeal cancer
     Dosage: 40 MG (D1-D3, QD), 21 DAYS AS A CYCLE
     Route: 041
     Dates: start: 20250402
  5. CISPLATIN [Suspect]
     Active Substance: CISPLATIN
     Dosage: 40 MG (D1-D3, QD), 21 DAYS AS A CYCLE
     Route: 041
     Dates: start: 20250424
  6. SODIUM CHLORIDE [Concomitant]
     Active Substance: SODIUM CHLORIDE
     Indication: Medication dilution
     Dosage: 100 ML, Q3WEEKS
     Route: 041
     Dates: start: 20250402, end: 20250402
  7. SODIUM CHLORIDE [Concomitant]
     Active Substance: SODIUM CHLORIDE
     Dosage: 100 ML, Q3WEEKS
     Route: 041
     Dates: start: 20250424
  8. SODIUM CHLORIDE [Concomitant]
     Active Substance: SODIUM CHLORIDE
     Dosage: 100 ML, Q3WEEKS
     Route: 041
  9. SODIUM CHLORIDE [Concomitant]
     Active Substance: SODIUM CHLORIDE
     Dosage: 100 ML, Q3WEEKS
     Route: 041
     Dates: start: 20250424, end: 20250428

REACTIONS (1)
  - Myelosuppression [Recovering/Resolving]

NARRATIVE: CASE EVENT DATE: 20250422
